FAERS Safety Report 19456684 (Version 2)
Quarter: 2021Q3

REPORT INFORMATION
  Report Type: Spontaneous
  Country: US (occurrence: US)
  Receive Date: 20210624
  Receipt Date: 20210806
  Transmission Date: 20211014
  Serious: Yes (Other)
  Sender: FDA-Public Use
  Company Number: US-JNJFOC-20210634765

PATIENT
  Age: 65 Year
  Sex: Female

DRUGS (14)
  1. DIAZEPAM. [Concomitant]
     Active Substance: DIAZEPAM
     Indication: MUSCLE RELAXANT THERAPY
     Dates: start: 2013
  2. DIAZEPAM. [Concomitant]
     Active Substance: DIAZEPAM
     Indication: CYSTITIS INTERSTITIAL
  3. HYDROXYZINE [Concomitant]
     Active Substance: HYDROXYZINE HYDROCHLORIDE
     Indication: MUSCLE RELAXANT THERAPY
     Dates: start: 2013
  4. CIMETIDINE [Concomitant]
     Active Substance: CIMETIDINE
     Indication: BLADDER PAIN
     Dates: start: 1990
  5. ELMIRON [Suspect]
     Active Substance: PENTOSAN POLYSULFATE SODIUM
     Indication: CYSTITIS INTERSTITIAL
     Route: 048
     Dates: start: 1994, end: 2020
  6. ESTRADIOL. [Concomitant]
     Active Substance: ESTRADIOL
     Indication: PREMATURE MENOPAUSE
     Dates: start: 1994
  7. RAPAFLO [Concomitant]
     Active Substance: SILODOSIN
     Indication: BLADDER SPASM
  8. LINZESS [Concomitant]
     Active Substance: LINACLOTIDE
     Indication: CROHN^S DISEASE
     Dates: start: 2000
  9. OMEPRAZOLE. [Concomitant]
     Active Substance: OMEPRAZOLE
     Indication: BLADDER PAIN
     Dates: start: 2005
  10. ESTRADIOL. [Concomitant]
     Active Substance: ESTRADIOL
     Indication: CYSTITIS INTERSTITIAL
  11. RAPAFLO [Concomitant]
     Active Substance: SILODOSIN
     Indication: CYSTITIS INTERSTITIAL
  12. METFORMIN [Concomitant]
     Active Substance: METFORMIN HYDROCHLORIDE
     Indication: DIABETES MELLITUS
     Dates: start: 2014
  13. THYROXINE [Concomitant]
     Active Substance: LEVOTHYROXINE
     Indication: THYROID DISORDER
  14. AMITRIPTYLINE [Concomitant]
     Active Substance: AMITRIPTYLINE
     Indication: BLADDER PAIN
     Dates: start: 1990

REACTIONS (2)
  - Maculopathy [Not Recovered/Not Resolved]
  - Retinal pigmentation [Unknown]

NARRATIVE: CASE EVENT DATE: 20200608
